FAERS Safety Report 8174742-9 (Version None)
Quarter: 2012Q1

REPORT INFORMATION
  Report Type: 
  Country: None (occurrence: None)
  Receive Date: 20120229
  Receipt Date: 20120224
  Transmission Date: 20120608
  Serious: Yes (Other)
  Sender: FDA-Public Use
  Company Number: JP-GLAXOSMITHKLINE-B0784432A

PATIENT
  Sex: Male

DRUGS (1)
  1. SERETIDE (50MCG/100MCG) [Suspect]
     Indication: PRODUCT USED FOR UNKNOWN INDICATION
     Route: 055

REACTIONS (3)
  - OROPHARYNGEAL PAIN [None]
  - ECZEMA [None]
  - CATARACT [None]
